FAERS Safety Report 5826009-9 (Version None)
Quarter: 2008Q3

REPORT INFORMATION
  Report Type: 
  Country: None (occurrence: None)
  Receive Date: 20080729
  Receipt Date: 20080204
  Transmission Date: 20090109
  Serious: Yes (Disabling)
  Sender: FDA-Public Use
  Company Number: IT-ROCHE-573321

PATIENT
  Sex: Male

DRUGS (2)
  1. PEGASYS [Suspect]
     Route: 065
     Dates: start: 20070504, end: 20071113
  2. REBETOL [Suspect]
     Route: 065
     Dates: start: 20070504, end: 20071113

REACTIONS (2)
  - DELIRIUM [None]
  - PSYCHOTIC DISORDER [None]
